FAERS Safety Report 4821747-9 (Version None)
Quarter: 2005Q4

REPORT INFORMATION
  Report Type: 
  Country: None (occurrence: None)
  Receive Date: 20051104
  Receipt Date: 20051104
  Transmission Date: 20060501
  Serious: Yes (Hospitalization)
  Sender: FDA-Public Use
  Company Number: None

PATIENT
  Sex: Female
  Weight: 68.0396 kg

DRUGS (1)
  1. METHYLPREDNISOLONE [Suspect]
     Indication: PREOPERATIVE CARE
     Dosage: SINGLE DOSE

REACTIONS (5)
  - CHEST PAIN [None]
  - COLD SWEAT [None]
  - FEELING ABNORMAL [None]
  - HEART RATE INCREASED [None]
  - NAUSEA [None]
